FAERS Safety Report 4271872-9 (Version None)
Quarter: 2004Q1

REPORT INFORMATION
  Report Type: 
  Country: None (occurrence: None)
  Receive Date: 20040115
  Receipt Date: 20040106
  Transmission Date: 20041129
  Serious: Yes (Other)
  Sender: FDA-Public Use
  Company Number: US-ROCHE-355413

PATIENT
  Age: 35 Year
  Sex: Female
  Weight: 95.3 kg

DRUGS (2)
  1. COPEGUS [Suspect]
     Route: 048
     Dates: start: 20030415, end: 20030425
  2. PEGASYS [Concomitant]
     Route: 058
     Dates: start: 20030415, end: 20030425

REACTIONS (3)
  - CAESAREAN SECTION [None]
  - COMPLICATIONS OF MATERNAL EXPOSURE TO THERAPEUTIC DRUGS [None]
  - PRE-ECLAMPSIA [None]
